FAERS Safety Report 18264334 (Version 1)
Quarter: 2020Q3

REPORT INFORMATION
  Report Type: Spontaneous
  Country: DE (occurrence: DE)
  Receive Date: 20200914
  Receipt Date: 20200914
  Transmission Date: 20201103
  Serious: Yes (Hospitalization)
  Sender: FDA-Public Use
  Company Number: NVSC2020DE248579

PATIENT
  Age: 63 Year
  Sex: Female

DRUGS (10)
  1. AMLODIPIN [Concomitant]
     Active Substance: AMLODIPINE BESYLATE
     Indication: PRODUCT USED FOR UNKNOWN INDICATION
     Dosage: 25 MG, BID (1?0?1?0)
     Route: 048
  2. TORASEMID [Concomitant]
     Active Substance: TORSEMIDE
     Indication: PRODUCT USED FOR UNKNOWN INDICATION
     Dosage: 5 MG, QD (1?0?1?0)
     Route: 048
  3. VENLAFAXINE [Concomitant]
     Active Substance: VENLAFAXINE HYDROCHLORIDE
     Indication: PRODUCT USED FOR UNKNOWN INDICATION
     Dosage: 150 MG, QD (1?0?0?0, DELAYED TABLETS)
     Route: 048
  4. NALOXONE [Concomitant]
     Active Substance: NALOXONE
     Indication: PRODUCT USED FOR UNKNOWN INDICATION
     Dosage: UNK (4|50 MG, 2X)
     Route: 048
  5. CANDESARTAN. [Concomitant]
     Active Substance: CANDESARTAN
     Indication: PRODUCT USED FOR UNKNOWN INDICATION
     Dosage: 4 MG, QD (1?0?0?0)
     Route: 048
  6. ORFIRIL [Suspect]
     Active Substance: VALPROATE SODIUM
     Dosage: 250 MG, QD (0?0?1?0)
     Route: 065
  7. CHOLECALCIFEROL [Concomitant]
     Active Substance: CHOLECALCIFEROL
     Indication: PRODUCT USED FOR UNKNOWN INDICATION
     Dosage: 1000 IE, QD (1?0?0?0)
     Route: 048
  8. ORFIRIL [Suspect]
     Active Substance: VALPROATE SODIUM
     Indication: PRODUCT USED FOR UNKNOWN INDICATION
     Dosage: 1 DF, BID (2?0?2?0)
     Route: 048
  9. ACETYLSALICYLIC ACID [Concomitant]
     Active Substance: ASPIRIN
     Indication: PRODUCT USED FOR UNKNOWN INDICATION
     Dosage: 100 MG, QD (0?1?0?0)
     Route: 048
  10. QUETIAPINE. [Suspect]
     Active Substance: QUETIAPINE
     Indication: PRODUCT USED FOR UNKNOWN INDICATION
     Dosage: 150 MG, QD (0?0?0?1, DELAYED TABLETS)
     Route: 048

REACTIONS (6)
  - Musculoskeletal pain [Recovering/Resolving]
  - Thrombocytopenia [Recovering/Resolving]
  - Adverse reaction [Recovering/Resolving]
  - Dizziness [Recovering/Resolving]
  - Asthenia [Recovering/Resolving]
  - Haematoma [Recovering/Resolving]
